FAERS Safety Report 10749198 (Version 1)
Quarter: 2015Q1

REPORT INFORMATION
  Report Type: Report from Study
  Country: BR (occurrence: BR)
  Receive Date: 20150129
  Receipt Date: 20150129
  Transmission Date: 20150721
  Serious: Yes (Hospitalization, Other)
  Sender: FDA-Public Use
  Company Number: BR-ABBVIE-15K-020-1338081-00

PATIENT
  Sex: Female
  Weight: 52 kg

DRUGS (7)
  1. VITERSOL D [Concomitant]
     Indication: PRODUCT USED FOR UNKNOWN INDICATION
     Route: 048
     Dates: start: 2009
  2. CALSUPRE D [Concomitant]
     Indication: BONE DISORDER
     Route: 048
     Dates: start: 2012
  3. HUMIRA [Suspect]
     Active Substance: ADALIMUMAB
     Indication: RHEUMATOID ARTHRITIS
     Route: 058
     Dates: start: 20100101, end: 2014
  4. PANTOGAR [Concomitant]
     Active Substance: AMINOBENZOIC ACID\CALCIUM PANTOTHENATE\CYSTINE\KERATIN\THIAMINE MONONITRATE
     Indication: NAIL DISORDER
     Route: 048
     Dates: start: 2013
  5. OMEPRAZOLE. [Concomitant]
     Active Substance: OMEPRAZOLE
     Indication: GASTRIC DISORDER
     Route: 048
     Dates: start: 2009
  6. PANTOGAR [Concomitant]
     Active Substance: AMINOBENZOIC ACID\CALCIUM PANTOTHENATE\CYSTINE\KERATIN\THIAMINE MONONITRATE
     Indication: HAIR DISORDER
  7. LOSARTAN [Concomitant]
     Active Substance: LOSARTAN
     Indication: BLOOD PRESSURE ABNORMAL
     Route: 048
     Dates: start: 2012

REACTIONS (5)
  - Cardiomegaly [Not Recovered/Not Resolved]
  - Diabetes mellitus [Not Recovered/Not Resolved]
  - Fatigue [Not Recovered/Not Resolved]
  - Cardiac failure [Unknown]
  - Blood cholesterol abnormal [Not Recovered/Not Resolved]

NARRATIVE: CASE EVENT DATE: 2010
